FAERS Safety Report 14952310 (Version 3)
Quarter: 2018Q3

REPORT INFORMATION
  Report Type: Spontaneous
  Country: US (occurrence: US)
  Receive Date: 20180530
  Receipt Date: 20180705
  Transmission Date: 20181010
  Serious: No
  Sender: FDA-Public Use
  Company Number: US-PFIZER INC-2018214831

PATIENT
  Age: 47 Year
  Sex: Female

DRUGS (2)
  1. DEPO?ESTRADIOL [Suspect]
     Active Substance: ESTRADIOL CYPIONATE
     Indication: FATIGUE
     Dosage: 0.5 ML, CYCLIC(.5 ML, EVERY 4 WEEKS)
     Route: 030
  2. DEPO?ESTRADIOL [Suspect]
     Active Substance: ESTRADIOL CYPIONATE
     Indication: OESTRADIOL DECREASED

REACTIONS (2)
  - Drug ineffective [Not Recovered/Not Resolved]
  - Product colour issue [Not Recovered/Not Resolved]
